FAERS Safety Report 16849306 (Version 2)
Quarter: 2019Q4

REPORT INFORMATION
  Report Type: Spontaneous
  Country: BR (occurrence: BR)
  Receive Date: 20190925
  Receipt Date: 20191023
  Transmission Date: 20200122
  Serious: No
  Sender: FDA-Public Use
  Company Number: BR-AMGEN-BRASP2018155158

PATIENT
  Age: 7 Year
  Sex: Female
  Weight: 30 kg

DRUGS (1)
  1. ENBREL [Suspect]
     Active Substance: ETANERCEPT
     Indication: JUVENILE IDIOPATHIC ARTHRITIS
     Dosage: 1 MILLIGRAM, QWK
     Route: 065
     Dates: start: 20181028, end: 201905

REACTIONS (5)
  - Injection site haemorrhage [Unknown]
  - Off label use [Unknown]
  - Injection site discolouration [Unknown]
  - Product use issue [Unknown]
  - Pyrexia [Recovered/Resolved]

NARRATIVE: CASE EVENT DATE: 20181028
